FAERS Safety Report 6997598-6 (Version None)
Quarter: 2010Q3

REPORT INFORMATION
  Report Type: 
  Country: None (occurrence: None)
  Receive Date: 20100918
  Receipt Date: 20091105
  Transmission Date: 20110219
  Serious: Yes (Other)
  Sender: FDA-Public Use
  Company Number: US-WYE-H12017909

PATIENT
  Sex: Female
  Weight: 54.48 kg

DRUGS (2)
  1. PREMPRO [Suspect]
     Indication: HOT FLUSH
     Dosage: ^SHE BELIEVED SHE WAS ON THE LOWEST DOSE POSSIBLE^
     Route: 048
     Dates: start: 19980101, end: 20081201
  2. CRESTOR [Concomitant]

REACTIONS (1)
  - BREAST CANCER [None]
